FAERS Safety Report 22332925 (Version 2)
Quarter: 2023Q2

REPORT INFORMATION
  Report Type: Spontaneous
  Country: CN (occurrence: CN)
  Receive Date: 20230517
  Receipt Date: 20230523
  Transmission Date: 20230721
  Serious: Yes (Hospitalization)
  Sender: FDA-Public Use
  Company Number: CN-EXELIXIS-CABO-23063553

PATIENT
  Age: 45 Year
  Sex: Male
  Weight: 58 kg

DRUGS (3)
  1. COMETRIQ [Suspect]
     Active Substance: CABOZANTINIB S-MALATE
     Indication: Medullary thyroid cancer
     Dosage: 140 MG, QD
     Route: 048
     Dates: start: 20210425, end: 20230417
  2. UBIDECARENONE [Concomitant]
     Active Substance: UBIDECARENONE
     Indication: Electrocardiogram ST segment depression
  3. POTASSIUM CHLORIDE [Concomitant]
     Active Substance: POTASSIUM CHLORIDE
     Indication: Hypokalaemia

REACTIONS (3)
  - Cardiac failure [Not Recovered/Not Resolved]
  - Diarrhoea [Not Recovered/Not Resolved]
  - Hypertension [Not Recovered/Not Resolved]

NARRATIVE: CASE EVENT DATE: 20210502
